FAERS Safety Report 9652081 (Version 1)
Quarter: 2013Q4

REPORT INFORMATION
  Report Type: Spontaneous
  Country: JP (occurrence: None)
  Receive Date: 20131025
  Receipt Date: 20131025
  Transmission Date: 20140711
  Serious: Yes (Hospitalization)
  Sender: FDA-Public Use
  Company Number: 151871

PATIENT
  Age: 33 Year
  Sex: Male

DRUGS (2)
  1. CYTARABINE [Suspect]
     Dosage: 3 G/M2 EVERY 12 HOURS ON DAYS 1, 3, AND 5
  2. IDARUBICIN HCL [Suspect]

REACTIONS (8)
  - Febrile neutropenia [None]
  - Bacteraemia [None]
  - Endophthalmitis [None]
  - Nasal obstruction [None]
  - Rhinorrhoea [None]
  - Discomfort [None]
  - Blood culture positive [None]
  - Streptococcus test positive [None]
